FAERS Safety Report 24398480 (Version 1)
Quarter: 2024Q4

REPORT INFORMATION
  Report Type: Spontaneous
  Country: US (occurrence: US)
  Receive Date: 20241004
  Receipt Date: 20241004
  Transmission Date: 20250115
  Serious: Yes (Other)
  Sender: INTRA-CELLULAR THERAPIES
  Company Number: US-INTRA-CELLULAR THERAPIES, INC.-2024ICT01157

PATIENT
  Age: 60 Year
  Sex: Female
  Weight: 113.38 kg

DRUGS (7)
  1. CAPLYTA [Suspect]
     Active Substance: LUMATEPERONE
     Indication: Bipolar disorder
     Dosage: 21 MG, 1X/DAY AT BEDTIME
     Route: 048
     Dates: start: 20240423, end: 202406
  2. CAPLYTA [Suspect]
     Active Substance: LUMATEPERONE
     Dosage: 21 MG, 1X/DAY
     Route: 048
     Dates: start: 2024
  3. ZOLPIDEM TARTRATE [Concomitant]
     Active Substance: ZOLPIDEM TARTRATE
     Dosage: 12.5 MG, 1X/DAY, AT BEDTIME
     Route: 048
  4. LAMOTRIGINE [Concomitant]
     Active Substance: LAMOTRIGINE
     Dosage: 300 MG, 1X/DAY, AT BEDTIME
     Route: 048
  5. LEVOTHYROXINE [Concomitant]
     Active Substance: LEVOTHYROXINE
     Dosage: 25 MCG, 1X/DAY
     Route: 048
  6. LEVOTHYROXINE [Concomitant]
     Active Substance: LEVOTHYROXINE
     Dosage: 200 MCG, 1X/DAY
     Route: 048
  7. VICTOZA [Concomitant]
     Active Substance: LIRAGLUTIDE

REACTIONS (1)
  - Tardive dyskinesia [Recovering/Resolving]

NARRATIVE: CASE EVENT DATE: 20240605
